FAERS Safety Report 13144433 (Version 1)
Quarter: 2017Q1

REPORT INFORMATION
  Report Type: Report from Study
  Country: US (occurrence: US)
  Receive Date: 20170124
  Receipt Date: 20170124
  Transmission Date: 20170428
  Serious: Yes (Hospitalization)
  Sender: FDA-Public Use
  Company Number: US-JNJFOC-20170118316

PATIENT
  Age: 62 Year
  Sex: Male
  Weight: 75.75 kg

DRUGS (1)
  1. USTEKINUMAB [Suspect]
     Active Substance: USTEKINUMAB
     Indication: PSORIASIS
     Route: 058
     Dates: start: 201003, end: 201304

REACTIONS (3)
  - Subdural haemorrhage [Recovered/Resolved]
  - Fall [Recovered/Resolved]
  - Cervical vertebral fracture [Recovered/Resolved]

NARRATIVE: CASE EVENT DATE: 20170104
